FAERS Safety Report 5066803-8 (Version None)
Quarter: 2006Q3

REPORT INFORMATION
  Report Type: 
  Country: None (occurrence: None)
  Receive Date: 20060801
  Receipt Date: 20060419
  Transmission Date: 20061208
  Serious: Yes (Death, Hospitalization)
  Sender: FDA-Public Use
  Company Number: US-GLAXOSMITHKLINE-A0602708A

PATIENT
  Age: 47 Year
  Sex: Male
  Weight: 67.3 kg

DRUGS (8)
  1. BEXXAR [Suspect]
     Indication: LYMPHOMA
     Route: 065
  2. LOVENOX [Concomitant]
     Indication: DEEP VEIN THROMBOSIS
  3. TESSALON [Concomitant]
     Indication: COUGH
     Route: 048
  4. PREDNISONE [Concomitant]
     Route: 048
  5. SENOKOT [Concomitant]
     Route: 048
  6. COLACE [Concomitant]
  7. OXYCONTIN [Concomitant]
     Route: 048
  8. RESTORIL [Concomitant]
     Route: 048

REACTIONS (7)
  - BILE DUCT OBSTRUCTION [None]
  - DISEASE PROGRESSION [None]
  - HEPATIC FAILURE [None]
  - HEPATITIS [None]
  - HYPERBILIRUBINAEMIA [None]
  - JAUNDICE CHOLESTATIC [None]
  - LYMPHADENOPATHY [None]
